FAERS Safety Report 4846822-4 (Version None)
Quarter: 2005Q4

REPORT INFORMATION
  Report Type: 
  Country: None (occurrence: None)
  Receive Date: 20051207
  Receipt Date: 20051125
  Transmission Date: 20060501
  Serious: Yes (Hospitalization, Other)
  Sender: FDA-Public Use
  Company Number: PHBS2005NO17904

PATIENT
  Age: 77 Year
  Sex: Male

DRUGS (9)
  1. DIGITOXIN TAB [Suspect]
     Indication: PULMONARY OEDEMA
     Dosage: 100 MCG/DAY DURING THE WEEK
     Route: 048
     Dates: start: 20050601, end: 20051001
  2. FUROSEMIDE [Suspect]
     Indication: PULMONARY OEDEMA
     Dosage: 60 MG, BID
     Route: 048
     Dates: start: 20050601, end: 20051001
  3. SOMAC [Suspect]
     Dosage: 40 MG/DAY
     Route: 048
     Dates: start: 20050601, end: 20051001
  4. DETROL [Suspect]
     Dosage: 4 MG/DAY
     Route: 048
     Dates: start: 20050601, end: 20051001
  5. TEGRETOL [Suspect]
     Dosage: 400 MG, BID
     Route: 048
     Dates: start: 20050601, end: 20051001
  6. HEMINEVRIN [Suspect]
     Dosage: 300 TO 600 MG AS NEEDED
     Route: 048
     Dates: start: 20050601, end: 20051001
  7. ALBYL-E [Concomitant]
     Indication: THROMBOSIS PROPHYLAXIS
     Dosage: 160 MG/DAY
     Route: 048
  8. AFI-B-TOTAL [Concomitant]
     Indication: ALCOHOLISM
     Dosage: 2 TABLETS/BID
     Route: 048
  9. SELOZOK [Concomitant]
     Dosage: 50 MG/DAY
     Route: 048

REACTIONS (20)
  - BLOOD CREATININE INCREASED [None]
  - C-REACTIVE PROTEIN INCREASED [None]
  - CARDIOMEGALY [None]
  - COGNITIVE DETERIORATION [None]
  - CREPITATIONS [None]
  - DEHYDRATION [None]
  - DEMENTIA [None]
  - DILATATION VENTRICULAR [None]
  - EJECTION FRACTION DECREASED [None]
  - ELECTROCARDIOGRAM Q WAVES [None]
  - ELECTROCARDIOGRAM ST SEGMENT ELEVATION [None]
  - EPISTAXIS [None]
  - HAEMATOCRIT DECREASED [None]
  - HAEMOGLOBIN DECREASED [None]
  - MENTAL IMPAIRMENT [None]
  - RIB FRACTURE [None]
  - TROPONIN T INCREASED [None]
  - URINARY TRACT INFECTION ENTEROCOCCAL [None]
  - VENTRICULAR DYSFUNCTION [None]
  - VENTRICULAR HYPOKINESIA [None]
